FAERS Safety Report 6431496-1 (Version None)
Quarter: 2009Q4

REPORT INFORMATION
  Report Type: 
  Country: None (occurrence: None)
  Receive Date: 20091106
  Receipt Date: 20091029
  Transmission Date: 20100525
  Serious: Yes (Other)
  Sender: FDA-Public Use
  Company Number: GB-ABBOTT-09P-167-0605671-00

PATIENT
  Age: 5 Year
  Sex: Male

DRUGS (1)
  1. EPILIM TABLETS [Suspect]
     Indication: EPILEPSY
     Route: 048

REACTIONS (2)
  - EPILEPSY [None]
  - MEDICATION RESIDUE [None]
